FAERS Safety Report 24776296 (Version 2)
Quarter: 2025Q1

REPORT INFORMATION
  Report Type: Report from Study
  Country: US (occurrence: US)
  Receive Date: 20241226
  Receipt Date: 20250106
  Transmission Date: 20250409
  Serious: Yes (Other)
  Sender: UCB
  Company Number: US-UCBSA-2024066541

PATIENT
  Sex: Female

DRUGS (1)
  1. CERTOLIZUMAB PEGOL [Suspect]
     Active Substance: CERTOLIZUMAB PEGOL
     Indication: Ankylosing spondylitis
     Dosage: 400 MILLIGRAM, EV 4 WEEKS
     Dates: start: 20240924

REACTIONS (1)
  - Ankylosing spondylitis [Recovered/Resolved]

NARRATIVE: CASE EVENT DATE: 20240101
